FAERS Safety Report 19401408 (Version 1)
Quarter: 2021Q2

REPORT INFORMATION
  Report Type: Spontaneous
  Country: US (occurrence: US)
  Receive Date: 20210610
  Receipt Date: 20210610
  Transmission Date: 20210717
  Serious: No
  Sender: FDA-Public Use
  Company Number: US-BEH-2021132565

PATIENT
  Sex: Female

DRUGS (1)
  1. HIZENTRA [Suspect]
     Active Substance: HUMAN IMMUNOGLOBULIN G
     Indication: IMMUNODEFICIENCY
     Dosage: 12 GRAM, EVERY 10 DAYS
     Route: 058
     Dates: start: 201910

REACTIONS (4)
  - Chromaturia [Unknown]
  - Vomiting [Recovered/Resolved]
  - Urine odour abnormal [Unknown]
  - Nausea [Recovered/Resolved]
